FAERS Safety Report 5904372-8 (Version None)
Quarter: 2008Q4

REPORT INFORMATION
  Report Type: 
  Country: None (occurrence: None)
  Receive Date: 20081001
  Receipt Date: 20080923
  Transmission Date: 20090506
  Serious: Yes (Other)
  Sender: FDA-Public Use
  Company Number: PHBS2008US05800

PATIENT

DRUGS (2)
  1. MYCOPHENOLIC ACID [Suspect]
     Indication: RENAL TRANSPLANT
  2. TACROLIMUS [Suspect]
     Indication: RENAL TRANSPLANT

REACTIONS (5)
  - HUMAN POLYOMAVIRUS INFECTION [None]
  - MADAROSIS [None]
  - RASH PAPULAR [None]
  - SKIN HYPERTROPHY [None]
  - TRICHOSTASIS SPINULOSA [None]
